FAERS Safety Report 20370009 (Version 1)
Quarter: 2022Q1

REPORT INFORMATION
  Report Type: Spontaneous
  Country: CA (occurrence: CA)
  Receive Date: 20220124
  Receipt Date: 20220124
  Transmission Date: 20220423
  Serious: Yes (Other)
  Sender: FDA-Public Use
  Company Number: CA-PFIZER INC-2019397654

PATIENT
  Age: 70 Year
  Sex: Female

DRUGS (2)
  1. XELJANZ XR [Suspect]
     Active Substance: TOFACITINIB CITRATE
     Indication: Rheumatoid arthritis
     Dosage: 11 MG, ONCE DAILY
     Route: 048
     Dates: start: 20191025, end: 2022
  2. METHOTREXATE [Concomitant]
     Active Substance: METHOTREXATE
     Dosage: 20 MG, WEEKLY
     Route: 065

REACTIONS (14)
  - Muscle rupture [Unknown]
  - Condition aggravated [Recovering/Resolving]
  - C-reactive protein increased [Recovering/Resolving]
  - Eosinophil count decreased [Not Recovered/Not Resolved]
  - Haematocrit decreased [Unknown]
  - Neutrophil count decreased [Not Recovered/Not Resolved]
  - Red blood cell count decreased [Unknown]
  - White blood cell count decreased [Not Recovered/Not Resolved]
  - Varicose vein [Unknown]
  - Joint swelling [Unknown]
  - Osteoarthritis [Unknown]
  - Loss of personal independence in daily activities [Unknown]
  - Mean cell volume increased [Unknown]
  - Mean cell haemoglobin increased [Not Recovered/Not Resolved]

NARRATIVE: CASE EVENT DATE: 20200221
